FAERS Safety Report 6431818-1 (Version None)
Quarter: 2009Q4

REPORT INFORMATION
  Report Type: 
  Country: None (occurrence: None)
  Receive Date: 20091104
  Receipt Date: 20091027
  Transmission Date: 20100525
  Serious: Yes (Death, Other)
  Sender: FDA-Public Use
  Company Number: 286-50794-09102191

PATIENT

DRUGS (1)
  1. VIDAZA [Suspect]
     Indication: MYELODYSPLASTIC SYNDROME
     Dosage: 75 MG/M2, FOR DAYS 1-7 OF A 28-DAY CYCLE, SUBCUTANEOUS
     Route: 058

REACTIONS (7)
  - ACUTE LEUKAEMIA [None]
  - ACUTE MYELOID LEUKAEMIA [None]
  - DRUG TOXICITY [None]
  - HAEMATOTOXICITY [None]
  - INFECTION [None]
  - PANCYTOPENIA [None]
  - SUBARACHNOID HAEMORRHAGE [None]
